FAERS Safety Report 11374488 (Version 2)
Quarter: 2015Q3

REPORT INFORMATION
  Report Type: Report from Study
  Country: FR (occurrence: FR)
  Receive Date: 20150813
  Receipt Date: 20150826
  Transmission Date: 20151125
  Serious: Yes (Hospitalization)
  Sender: FDA-Public Use
  Company Number: FR-ROCHE-1620432

PATIENT
  Sex: Male
  Weight: 70 kg

DRUGS (3)
  1. CORTANCYL [Concomitant]
     Active Substance: PREDNISONE
     Indication: BRAIN OEDEMA
     Route: 065
     Dates: start: 20150624
  2. ESOMEPRAZOLE [Concomitant]
     Active Substance: ESOMEPRAZOLE
     Indication: GASTRITIS
     Route: 065
     Dates: start: 20150724
  3. VEMURAFENIB [Suspect]
     Active Substance: VEMURAFENIB
     Indication: NEOPLASM MALIGNANT
     Dosage: DATE OF LAST DOSE ADMINISTERED PRIOR TO SAE: 08/JUL/2015?CUMULATIVE DOSE: 27840 MG, 3 TABLETS
     Route: 048
     Dates: start: 20150624

REACTIONS (1)
  - Syncope [Recovered/Resolved]

NARRATIVE: CASE EVENT DATE: 20150723
